FAERS Safety Report 26141537 (Version 3)
Quarter: 2025Q4

REPORT INFORMATION
  Report Type: Spontaneous
  Country: EU (occurrence: EU)
  Receive Date: 20251210
  Receipt Date: 20251230
  Transmission Date: 20260118
  Serious: Yes (Hospitalization)
  Sender: MYLAN
  Company Number: None

PATIENT
  Age: 55 Year
  Sex: Male
  Weight: 59 kg

DRUGS (20)
  1. SERTRALINE [Suspect]
     Active Substance: SERTRALINE HYDROCHLORIDE
     Indication: Depressed mood
     Dosage: 50 MILLIGRAM, QD (50 MG IN THE MORNING)
     Route: 061
     Dates: start: 20250814, end: 20251114
  2. SERTRALINE [Suspect]
     Active Substance: SERTRALINE HYDROCHLORIDE
     Dosage: 50 MILLIGRAM, QD (50 MG IN THE MORNING)
     Route: 048
     Dates: start: 20250814, end: 20251114
  3. SERTRALINE [Suspect]
     Active Substance: SERTRALINE HYDROCHLORIDE
     Dosage: 50 MILLIGRAM, QD (50 MG IN THE MORNING)
     Route: 048
     Dates: start: 20250814, end: 20251114
  4. SERTRALINE [Suspect]
     Active Substance: SERTRALINE HYDROCHLORIDE
     Dosage: 50 MILLIGRAM, QD (50 MG IN THE MORNING)
     Route: 061
     Dates: start: 20250814, end: 20251114
  5. OLANZAPINE [Suspect]
     Active Substance: OLANZAPINE
     Indication: Agitation
     Dosage: 5 MILLIGRAM,QD(5 MG AT NIGHT, WITH THE OPTION OF TAKING A RESCUE DOSE,DISPERSIBLE TABLET)
     Route: 061
     Dates: start: 20250814, end: 20251101
  6. OLANZAPINE [Suspect]
     Active Substance: OLANZAPINE
     Dosage: 5 MILLIGRAM,QD(5 MG AT NIGHT, WITH THE OPTION OF TAKING A RESCUE DOSE,DISPERSIBLE TABLET)
     Route: 061
     Dates: start: 20250814, end: 20251101
  7. OLANZAPINE [Suspect]
     Active Substance: OLANZAPINE
     Dosage: 5 MILLIGRAM,QD(5 MG AT NIGHT, WITH THE OPTION OF TAKING A RESCUE DOSE,DISPERSIBLE TABLET)
     Route: 048
     Dates: start: 20250814, end: 20251101
  8. OLANZAPINE [Suspect]
     Active Substance: OLANZAPINE
     Dosage: 5 MILLIGRAM,QD(5 MG AT NIGHT, WITH THE OPTION OF TAKING A RESCUE DOSE,DISPERSIBLE TABLET)
     Route: 048
     Dates: start: 20250814, end: 20251101
  9. OLANZAPINE [Suspect]
     Active Substance: OLANZAPINE
     Dosage: 20 MILLIGRAM, QD,(5 MILLIGRAM,QD(5 MG AT NIGHT, WITH THE OPTION OF TAKING A RESCUE DOSE,DISPERSIBLE TABLET)
     Route: 061
     Dates: start: 20251102
  10. OLANZAPINE [Suspect]
     Active Substance: OLANZAPINE
     Dosage: 20 MILLIGRAM, QD,(5 MILLIGRAM,QD(5 MG AT NIGHT, WITH THE OPTION OF TAKING A RESCUE DOSE,DISPERSIBLE TABLET)
     Route: 061
     Dates: start: 20251102
  11. OLANZAPINE [Suspect]
     Active Substance: OLANZAPINE
     Dosage: 20 MILLIGRAM, QD,(5 MILLIGRAM,QD(5 MG AT NIGHT, WITH THE OPTION OF TAKING A RESCUE DOSE,DISPERSIBLE TABLET)
     Route: 048
     Dates: start: 20251102
  12. OLANZAPINE [Suspect]
     Active Substance: OLANZAPINE
     Dosage: 20 MILLIGRAM, QD,(5 MILLIGRAM,QD(5 MG AT NIGHT, WITH THE OPTION OF TAKING A RESCUE DOSE,DISPERSIBLE TABLET)
     Route: 048
     Dates: start: 20251102
  13. LORAZEPAM [Suspect]
     Active Substance: LORAZEPAM
     Indication: Insomnia
     Dosage: 1 MILLIGRAM, QD (1 MG AT NIGHT)
     Route: 061
     Dates: start: 20251026, end: 20251114
  14. LORAZEPAM [Suspect]
     Active Substance: LORAZEPAM
     Dosage: 1 MILLIGRAM, QD (1 MG AT NIGHT)
     Route: 048
     Dates: start: 20251026, end: 20251114
  15. LORAZEPAM [Suspect]
     Active Substance: LORAZEPAM
     Dosage: 1 MILLIGRAM, QD (1 MG AT NIGHT)
     Route: 048
     Dates: start: 20251026, end: 20251114
  16. LORAZEPAM [Suspect]
     Active Substance: LORAZEPAM
     Dosage: 1 MILLIGRAM, QD (1 MG AT NIGHT)
     Route: 061
     Dates: start: 20251026, end: 20251114
  17. LEVOMEPROMAZINE MALEATE [Suspect]
     Active Substance: LEVOMEPROMAZINE MALEATE
     Indication: Agitation
     Dosage: 25 MILLILITER, PRN (1 ORAL AMPOULE AT NIGHT)
     Route: 061
  18. LEVOMEPROMAZINE MALEATE [Suspect]
     Active Substance: LEVOMEPROMAZINE MALEATE
     Dosage: 25 MILLILITER, PRN (1 ORAL AMPOULE AT NIGHT)
     Route: 048
  19. LEVOMEPROMAZINE MALEATE [Suspect]
     Active Substance: LEVOMEPROMAZINE MALEATE
     Dosage: 25 MILLILITER, PRN (1 ORAL AMPOULE AT NIGHT)
     Route: 048
  20. LEVOMEPROMAZINE MALEATE [Suspect]
     Active Substance: LEVOMEPROMAZINE MALEATE
     Dosage: 25 MILLILITER, PRN (1 ORAL AMPOULE AT NIGHT)
     Route: 061

REACTIONS (1)
  - Hepatic cytolysis [Recovered/Resolved]

NARRATIVE: CASE EVENT DATE: 20251028
